FAERS Safety Report 23148656 (Version 1)
Quarter: 2023Q4

REPORT INFORMATION
  Report Type: Spontaneous
  Country: US (occurrence: US)
  Receive Date: 20231106
  Receipt Date: 20231106
  Transmission Date: 20240110
  Serious: Yes (Hospitalization)
  Sender: FDA-Public Use
  Company Number: US-BAYER-2023A154112

PATIENT
  Age: 77 Year
  Sex: Female

DRUGS (7)
  1. ADEMPAS [Suspect]
     Active Substance: RIOCIGUAT
     Indication: Pulmonary hypertension
     Dosage: 1.5 MG, TID
     Route: 048
     Dates: start: 20190604
  2. ELIQUIS [Concomitant]
     Active Substance: APIXABAN
  3. ALBUTEROL SULFATE [Concomitant]
     Active Substance: ALBUTEROL SULFATE
  4. ANORO ELLIPTA [Concomitant]
     Active Substance: UMECLIDINIUM BROMIDE\VILANTEROL TRIFENATATE
  5. LISINOPRIL [Concomitant]
     Active Substance: LISINOPRIL
  6. STIOLTO RESPIMAT [Concomitant]
     Active Substance: OLODATEROL HYDROCHLORIDE\TIOTROPIUM BROMIDE MONOHYDRATE
  7. DUONEB [Concomitant]
     Active Substance: ALBUTEROL SULFATE\IPRATROPIUM BROMIDE

REACTIONS (3)
  - Sepsis [Recovered/Resolved]
  - Pneumonia [Recovered/Resolved]
  - Acute respiratory failure [Recovered/Resolved]

NARRATIVE: CASE EVENT DATE: 20231003
